FAERS Safety Report 18658794 (Version 2)
Quarter: 2020Q4

REPORT INFORMATION
  Report Type: Spontaneous
  Country: FR (occurrence: FR)
  Receive Date: 20201223
  Receipt Date: 20201229
  Transmission Date: 20210114
  Serious: Yes (Life-Threatening)
  Sender: FDA-Public Use
  Company Number: FR-PFIZER INC-2020507014

PATIENT
  Age: 53 Year
  Sex: Female
  Weight: 82 kg

DRUGS (9)
  1. ATENOLOL. [Suspect]
     Active Substance: ATENOLOL
     Indication: HYPERTENSION
     Dosage: 50 MG, 1X/DAY
     Route: 048
     Dates: end: 20201001
  2. LIPTRUZET [Suspect]
     Active Substance: ATORVASTATIN CALCIUM\EZETIMIBE
     Indication: DYSLIPIDAEMIA
     Dosage: 1 DF, 1X/DAY
     Route: 048
  3. INNOVAIR [Suspect]
     Active Substance: BECLOMETHASONE DIPROPIONATE\FORMOTEROL
     Dosage: 2 DF, 1X/DAY
     Route: 055
  4. HYDROCHLOROTHIAZIDE. [Suspect]
     Active Substance: HYDROCHLOROTHIAZIDE
     Indication: HYPERTENSION
     Dosage: 12.5 MG, 1X/DAY
     Route: 048
     Dates: end: 20201109
  5. PLAVIX [Suspect]
     Active Substance: CLOPIDOGREL BISULFATE
     Indication: PROPHYLAXIS
     Dosage: 1 DF, 1X/DAY
     Route: 048
     Dates: end: 20201109
  6. LOSARTAN POTASSIUM. [Suspect]
     Active Substance: LOSARTAN POTASSIUM
     Indication: HYPERTENSION
     Dosage: 50 MG, 1X/DAY
     Route: 048
     Dates: end: 20201109
  7. ALPRAZOLAM. [Suspect]
     Active Substance: ALPRAZOLAM
     Indication: ANXIETY
     Dosage: 0.5 MG, 1X/DAY
     Route: 048
     Dates: end: 20201119
  8. PROTHIADEN [Suspect]
     Active Substance: DOTHIEPIN HYDROCHLORIDE
     Indication: DEPRESSION
     Dosage: 275 MG, 1X/DAY (100-75-100)
     Route: 048
  9. ISOMERIDE [Suspect]
     Active Substance: DEXFENFLURAMINE
     Indication: OBESITY
     Dosage: UNKNOWN
     Route: 048
     Dates: start: 1990

REACTIONS (1)
  - Cardiac valve disease [Recovering/Resolving]

NARRATIVE: CASE EVENT DATE: 20200923
